FAERS Safety Report 20826316 (Version 1)
Quarter: 2022Q2

REPORT INFORMATION
  Report Type: Spontaneous
  Country: US (occurrence: None)
  Receive Date: 20220512
  Receipt Date: 20220512
  Transmission Date: 20220721
  Serious: Yes (Hospitalization)
  Sender: FDA-Public Use
  Company Number: None

PATIENT
  Age: 73 Year
  Sex: Male
  Weight: 90.54 kg

DRUGS (11)
  1. CAPECITABINE [Suspect]
     Active Substance: CAPECITABINE
     Indication: Small intestine carcinoma
     Dosage: OTHER FREQUENCY : 2W, 1W OFF;?
     Route: 048
     Dates: start: 202204, end: 20220505
  2. CARVEDILOL [Concomitant]
     Active Substance: CARVEDILOL
  3. CELECOXIB [Concomitant]
     Active Substance: CELECOXIB
  4. ELIQUIS [Concomitant]
     Active Substance: APIXABAN
  5. FLONASE [Concomitant]
     Active Substance: FLUTICASONE PROPIONATE
  6. HYDROCORTISONE-ACETAMINOPHEN [Concomitant]
  7. HYDROCORTISONE [Concomitant]
     Active Substance: HYDROCORTISONE
  8. LISINOPRIL [Concomitant]
     Active Substance: LISINOPRIL
  9. LUNESTA [Concomitant]
     Active Substance: ESZOPICLONE
  10. VITAMIN B [Concomitant]
     Active Substance: VITAMIN B
  11. VITAMIN D3 [Concomitant]
     Active Substance: CHOLECALCIFEROL

REACTIONS (2)
  - Pneumonia [None]
  - Therapy interrupted [None]
